FAERS Safety Report 9285542 (Version 1)
Quarter: 2013Q2

REPORT INFORMATION
  Report Type: Spontaneous
  Country: FR (occurrence: FR)
  Receive Date: 20130513
  Receipt Date: 20130513
  Transmission Date: 20140414
  Serious: Yes (Hospitalization)
  Sender: FDA-Public Use
  Company Number: FR-SANOFI-AVENTIS-2013SA046525

PATIENT
  Age: 82 Year
  Sex: Female

DRUGS (12)
  1. AMAREL [Suspect]
     Indication: DIABETES MELLITUS
     Route: 048
     Dates: end: 20130226
  2. LOSARTAN POTASSIUM [Suspect]
     Indication: PRODUCT USED FOR UNKNOWN INDICATION
     Route: 048
     Dates: start: 201301
  3. OLMETEC [Suspect]
     Indication: HYPERTENSION
     Dosage: STRENGTH: 40 MG TABFIL
     Route: 048
     Dates: end: 20130226
  4. EUPRESSYL [Suspect]
     Indication: HYPERTENSION
     Route: 048
     Dates: end: 201301
  5. LERCAN [Suspect]
     Indication: HYPERTENSION
     Route: 048
     Dates: end: 201301
  6. FLUDEX [Suspect]
     Indication: HYPERTENSION
     Route: 048
     Dates: end: 201301
  7. EUPHYLLINE [Suspect]
     Indication: PRODUCT USED FOR UNKNOWN INDICATION
     Route: 048
     Dates: start: 201301, end: 20130306
  8. KARDEGIC [Concomitant]
     Route: 048
  9. SPASFON [Concomitant]
     Route: 048
     Dates: start: 201302
  10. SEROPLEX [Concomitant]
     Route: 048
  11. INEXIUM [Concomitant]
     Route: 048
     Dates: start: 201302
  12. MECIR [Concomitant]
     Indication: URINARY RETENTION
     Route: 048
     Dates: start: 201302

REACTIONS (3)
  - Pancreatic necrosis [Recovering/Resolving]
  - Abdominal pain [Recovering/Resolving]
  - Vomiting [Recovering/Resolving]
